FAERS Safety Report 10301331 (Version 1)
Quarter: 2014Q3

REPORT INFORMATION
  Report Type: Spontaneous
  Country: US (occurrence: None)
  Receive Date: 20140709
  Receipt Date: 20140709
  Transmission Date: 20150326
  Serious: No
  Sender: FDA-Public Use
  Company Number: None

PATIENT
  Age: 18 Year
  Sex: Male

DRUGS (6)
  1. MINOCYCLINE [Concomitant]
     Active Substance: MINOCYCLINE\MINOCYCLINE HYDROCHLORIDE
  2. SULFATE [Concomitant]
  3. SODIUM SULFACETAMIDE [Concomitant]
     Active Substance: SULFACETAMIDE SODIUM
  4. CLINDAMYCIN PHOSPHATE TOPICAL SOLUTION USP 1% WIPES [Concomitant]
  5. FABIOR [Suspect]
     Active Substance: TAZAROTENE
     Indication: ACNE
     Dosage: 100 GR
     Route: 061
     Dates: start: 20140614, end: 20140619
  6. ACUWASH [Concomitant]

REACTIONS (2)
  - Chemical injury [None]
  - Rash [None]

NARRATIVE: CASE EVENT DATE: 20140617
